FAERS Safety Report 19604269 (Version 19)
Quarter: 2024Q4

REPORT INFORMATION
  Report Type: Spontaneous
  Country: GB (occurrence: GB)
  Receive Date: 20210723
  Receipt Date: 20241217
  Transmission Date: 20250114
  Serious: Yes (Death, Life-Threatening, Hospitalization, Disabling, Other)
  Sender: ORGANON
  Company Number: GB-ORGANON-O2107GBR001922

PATIENT
  Age: 31 Year
  Sex: Female
  Weight: 63.5 kg

DRUGS (122)
  1. MIRTAZAPINE [Suspect]
     Active Substance: MIRTAZAPINE
     Indication: Depression
     Dosage: 30 MG, QD (30 MG IN THE DAY AND 15 MG AT NIGHT,TABLET) TABLET
     Route: 048
     Dates: start: 20100923, end: 20101108
  2. MIRTAZAPINE [Suspect]
     Active Substance: MIRTAZAPINE
     Indication: Depression
     Dosage: 30 MG, QD,  (30 MG IN THE DAY AND 15 MG AT NIGHT), TABLET
     Route: 048
     Dates: start: 20101007, end: 20101012
  3. MIRTAZAPINE [Suspect]
     Active Substance: MIRTAZAPINE
     Indication: Psychotic disorder
     Dosage: 30 MG, QD (30MG IN THE DAY AND 15MG AT NIGHT)
     Route: 065
     Dates: start: 20110224, end: 20110506
  4. MIRTAZAPINE [Suspect]
     Active Substance: MIRTAZAPINE
     Dosage: 15 MILLIGRAM, QD (30MG IN THE DAY AND 15MG AT NIGHT )
     Route: 065
     Dates: start: 20110224, end: 20110506
  5. MIRTAZAPINE [Suspect]
     Active Substance: MIRTAZAPINE
     Dosage: 15 MILLIGRAM, QD
     Route: 048
     Dates: start: 20101007, end: 20101012
  6. MIRTAZAPINE [Suspect]
     Active Substance: MIRTAZAPINE
     Dosage: 30 MILLIGRAM, QD (ONCE PER DAY)
     Route: 048
  7. MIRTAZAPINE [Suspect]
     Active Substance: MIRTAZAPINE
     Dosage: 30 MG, QD (15 MG, 2 TIMES PER DAY)
     Route: 048
     Dates: start: 20100923, end: 20101108
  8. MIRTAZAPINE [Suspect]
     Active Substance: MIRTAZAPINE
     Dosage: 60 MILLIGRAM, QD
     Route: 048
     Dates: start: 20100923, end: 20101108
  9. MIRTAZAPINE [Suspect]
     Active Substance: MIRTAZAPINE
     Dosage: 30 MILLIGRAM, QD
     Route: 048
     Dates: start: 20101007, end: 20101012
  10. CODEINE [Interacting]
     Active Substance: CODEINE
     Indication: Analgesic therapy
     Dosage: UNK
     Route: 048
     Dates: start: 2002, end: 2002
  11. CODEINE [Interacting]
     Active Substance: CODEINE
     Indication: Serotonin syndrome
     Dosage: 2008/2009, DRUG START/DRUG WITHDRAWN
     Route: 048
     Dates: start: 2008, end: 2009
  12. CODEINE [Interacting]
     Active Substance: CODEINE
     Indication: Analgesic therapy
     Dosage: UNK (15-30 MG)
     Route: 048
     Dates: start: 20110615, end: 20110723
  13. CODEINE [Interacting]
     Active Substance: CODEINE
     Indication: Product used for unknown indication
     Dosage: UNK
     Route: 048
     Dates: start: 20110224, end: 20110410
  14. CODEINE [Interacting]
     Active Substance: CODEINE
     Dosage: UNK UNK, QD
     Route: 065
     Dates: start: 20110224, end: 20110506
  15. CODEINE [Interacting]
     Active Substance: CODEINE
     Dosage: UNK
  16. CODEINE [Interacting]
     Active Substance: CODEINE
     Dosage: UNK, Q24H (24 - EVERY HOUR)
     Route: 048
     Dates: start: 20110715, end: 20110723
  17. CODEINE [Interacting]
     Active Substance: CODEINE
     Dosage: UNK, QD
     Route: 048
     Dates: start: 2008, end: 2008
  18. CODEINE [Interacting]
     Active Substance: CODEINE
     Dosage: 15-30 MG, QD
     Route: 048
     Dates: start: 20110615, end: 20110623
  19. PAROXETINE HYDROCHLORIDE [Suspect]
     Active Substance: PAROXETINE HYDROCHLORIDE
     Indication: Product used for unknown indication
     Dosage: 60 MG (20 MG TID INTERRUPTED)
     Route: 048
     Dates: start: 1997
  20. PAROXETINE HYDROCHLORIDE [Suspect]
     Active Substance: PAROXETINE HYDROCHLORIDE
     Indication: Depression
     Dosage: 20 MG, TID (60 MG, QD)
     Route: 048
     Dates: start: 19990801, end: 201105
  21. PAROXETINE HYDROCHLORIDE [Suspect]
     Active Substance: PAROXETINE HYDROCHLORIDE
     Indication: Product used for unknown indication
     Dosage: 4 CYCLICAL, QD (50-100 MG QD)
     Route: 048
     Dates: start: 20081201, end: 20101210
  22. PAROXETINE HYDROCHLORIDE [Suspect]
     Active Substance: PAROXETINE HYDROCHLORIDE
     Dosage: 40 MG, QD (INTERRUPTED)
     Route: 048
     Dates: start: 201105, end: 20110706
  23. PAROXETINE HYDROCHLORIDE [Suspect]
     Active Substance: PAROXETINE HYDROCHLORIDE
     Dosage: 20 MG, BID
     Route: 048
     Dates: start: 2011, end: 20110706
  24. PAROXETINE HYDROCHLORIDE [Suspect]
     Active Substance: PAROXETINE HYDROCHLORIDE
     Dosage: 40 MG
     Route: 048
     Dates: start: 201105, end: 20110706
  25. PAROXETINE HYDROCHLORIDE [Suspect]
     Active Substance: PAROXETINE HYDROCHLORIDE
     Dosage: UNK
     Route: 048
     Dates: start: 201112
  26. PAROXETINE HYDROCHLORIDE [Suspect]
     Active Substance: PAROXETINE HYDROCHLORIDE
     Dosage: UNK
     Route: 048
     Dates: start: 201012
  27. PAROXETINE HYDROCHLORIDE [Suspect]
     Active Substance: PAROXETINE HYDROCHLORIDE
     Dosage: 60 MG, QD (20 MG 3 TIMES PER DAY)
     Route: 065
     Dates: start: 1997, end: 201105
  28. PAROXETINE HYDROCHLORIDE [Suspect]
     Active Substance: PAROXETINE HYDROCHLORIDE
     Dosage: UNK
     Route: 048
     Dates: start: 200812, end: 20101210
  29. PAROXETINE HYDROCHLORIDE [Suspect]
     Active Substance: PAROXETINE HYDROCHLORIDE
     Dosage: UNK
  30. DIAZEPAM [Suspect]
     Active Substance: DIAZEPAM
     Indication: Depression
     Dosage: 5 MG, QD
     Route: 048
     Dates: start: 20110725
  31. DIAZEPAM [Suspect]
     Active Substance: DIAZEPAM
     Indication: Serotonin syndrome
     Dosage: 8 MG, QD (5 MG QDS AND NOW ON 2-2-4 MG)
     Route: 048
     Dates: start: 20110725, end: 20110725
  32. DIAZEPAM [Suspect]
     Active Substance: DIAZEPAM
     Indication: Muscle spasms
     Dosage: UNK, QD (5 MG QDS AND NOW ON 2-2-4 MG)
     Route: 048
     Dates: start: 20110725
  33. DIAZEPAM [Suspect]
     Active Substance: DIAZEPAM
     Dosage: 20 MG, QD TABLET (5 MG, 4 TIMES A DAY )
     Route: 065
     Dates: start: 20110725
  34. DIAZEPAM [Suspect]
     Active Substance: DIAZEPAM
     Dosage: 8 MG, UNK (EVERY 24 HOURS)
     Route: 048
     Dates: start: 20110725
  35. DIAZEPAM [Suspect]
     Active Substance: DIAZEPAM
     Dosage: 8 MG, QD
     Route: 048
  36. DIAZEPAM [Suspect]
     Active Substance: DIAZEPAM
     Dosage: 8 MILLIGRAM
     Route: 065
  37. DIAZEPAM [Suspect]
     Active Substance: DIAZEPAM
     Dosage: UNK
     Dates: start: 20110725
  38. DIAZEPAM [Suspect]
     Active Substance: DIAZEPAM
     Dosage: UNK
     Route: 048
  39. PAROXETINE [Suspect]
     Active Substance: PAROXETINE
     Indication: Depression
     Dosage: 60 MG
     Route: 048
     Dates: start: 1997, end: 201105
  40. PAROXETINE [Suspect]
     Active Substance: PAROXETINE
     Indication: Post-traumatic stress disorder
     Dosage: 60 MG
     Route: 048
     Dates: start: 19990801, end: 201105
  41. PAROXETINE [Suspect]
     Active Substance: PAROXETINE
     Dosage: 40 MG, QD
     Route: 048
     Dates: start: 19990801, end: 20110706
  42. PAROXETINE [Suspect]
     Active Substance: PAROXETINE
     Dosage: UNK
     Route: 048
     Dates: start: 1996
  43. PAROXETINE [Suspect]
     Active Substance: PAROXETINE
     Dosage: 40 MG, QD (20 MG (2 PER DAY)
     Route: 048
     Dates: start: 201105, end: 20110706
  44. PAROXETINE [Suspect]
     Active Substance: PAROXETINE
     Dosage: UNK
     Route: 048
     Dates: start: 1996, end: 201105
  45. PAROXETINE [Suspect]
     Active Substance: PAROXETINE
     Dosage: (20 MG THREE TIMES A DAY)
     Route: 048
     Dates: start: 199908, end: 201105
  46. PAROXETINE [Suspect]
     Active Substance: PAROXETINE
     Dosage: UNK
     Dates: start: 201012
  47. PROCYCLIDINE HYDROCHLORIDE [Interacting]
     Active Substance: PROCYCLIDINE HYDROCHLORIDE
     Indication: Extrapyramidal disorder
     Dosage: 5 MILLIGRAM, QD
     Route: 048
     Dates: start: 1995, end: 1996
  48. PROCYCLIDINE HYDROCHLORIDE [Interacting]
     Active Substance: PROCYCLIDINE HYDROCHLORIDE
     Indication: Oculogyric crisis
     Dosage: 5 MILLIGRAM, Q24H
     Route: 048
     Dates: start: 1995, end: 1996
  49. PROCYCLIDINE HYDROCHLORIDE [Interacting]
     Active Substance: PROCYCLIDINE HYDROCHLORIDE
     Dosage: 15 MG, QD
     Route: 048
     Dates: start: 20110503, end: 20110510
  50. PROCYCLIDINE HYDROCHLORIDE [Interacting]
     Active Substance: PROCYCLIDINE HYDROCHLORIDE
     Dosage: 20 MILLIGRAM
     Route: 048
     Dates: start: 20110324, end: 20110506
  51. PROCYCLIDINE HYDROCHLORIDE [Interacting]
     Active Substance: PROCYCLIDINE HYDROCHLORIDE
     Dosage: IN 1ST TRIMESTER
     Route: 065
     Dates: start: 20110415
  52. PROCYCLIDINE HYDROCHLORIDE [Interacting]
     Active Substance: PROCYCLIDINE HYDROCHLORIDE
     Dosage: 5 MILLIGRAM, QD
     Route: 048
     Dates: start: 20110503, end: 20110510
  53. QUETIAPINE FUMARATE [Suspect]
     Active Substance: QUETIAPINE FUMARATE
     Indication: Psychotic disorder
     Dosage: 300 MG
     Route: 048
     Dates: start: 20110224, end: 20110506
  54. QUETIAPINE FUMARATE [Suspect]
     Active Substance: QUETIAPINE FUMARATE
     Indication: Psychotic disorder
     Dosage: UNK
     Route: 048
     Dates: start: 19990801, end: 20110706
  55. QUETIAPINE FUMARATE [Suspect]
     Active Substance: QUETIAPINE FUMARATE
     Indication: Product used for unknown indication
     Dosage: UNK
     Route: 048
  56. AMITRIPTYLINE HYDROCHLORIDE [Interacting]
     Active Substance: AMITRIPTYLINE HYDROCHLORIDE
     Indication: Muscle spasms
     Dosage: 25 MG, QD ( AT NIGHT)
     Route: 065
     Dates: start: 20110810
  57. AMITRIPTYLINE HYDROCHLORIDE [Interacting]
     Active Substance: AMITRIPTYLINE HYDROCHLORIDE
     Indication: Neuralgia
     Dosage: AT NIGHT
     Route: 065
  58. AMITRIPTYLINE HYDROCHLORIDE [Interacting]
     Active Substance: AMITRIPTYLINE HYDROCHLORIDE
     Indication: Serotonin syndrome
     Dosage: AT NIGHT
     Route: 065
  59. AMITRIPTYLINE HYDROCHLORIDE [Interacting]
     Active Substance: AMITRIPTYLINE HYDROCHLORIDE
     Indication: Product used for unknown indication
     Dosage: AT NIGHT
     Route: 065
  60. AMITRIPTYLINE HYDROCHLORIDE [Interacting]
     Active Substance: AMITRIPTYLINE HYDROCHLORIDE
     Indication: Drug withdrawal syndrome
     Dosage: UNK
  61. AMITRIPTYLINE HYDROCHLORIDE [Interacting]
     Active Substance: AMITRIPTYLINE HYDROCHLORIDE
     Indication: Sedation
     Dosage: UNK
  62. AMITRIPTYLINE HYDROCHLORIDE [Interacting]
     Active Substance: AMITRIPTYLINE HYDROCHLORIDE
     Dosage: UNK
  63. AMITRIPTYLINE HYDROCHLORIDE [Interacting]
     Active Substance: AMITRIPTYLINE HYDROCHLORIDE
     Dosage: UNK
  64. AMITRIPTYLINE HYDROCHLORIDE [Interacting]
     Active Substance: AMITRIPTYLINE HYDROCHLORIDE
     Dosage: UNK
  65. AMITRIPTYLINE HYDROCHLORIDE [Interacting]
     Active Substance: AMITRIPTYLINE HYDROCHLORIDE
     Dosage: UNK
  66. LORAZEPAM [Suspect]
     Active Substance: LORAZEPAM
     Indication: Sedation
     Dosage: 4 MG
     Route: 048
     Dates: start: 20110224, end: 20110410
  67. LORAZEPAM [Suspect]
     Active Substance: LORAZEPAM
     Dosage: 1 MILLIGRAM, QD
     Route: 048
     Dates: start: 20110523, end: 20110627
  68. LORAZEPAM [Suspect]
     Active Substance: LORAZEPAM
     Dosage: 1 MG
     Route: 048
     Dates: start: 20110725
  69. LORAZEPAM [Suspect]
     Active Substance: LORAZEPAM
     Dosage: 4 MILLIGRAM, QD (1 MG, 4 TIMES PER DAY)
     Route: 048
     Dates: start: 20110224, end: 20110410
  70. LORAZEPAM [Suspect]
     Active Substance: LORAZEPAM
     Dosage: 4 MILLIGRAM, QD
     Route: 048
     Dates: start: 20110523, end: 20110627
  71. LORAZEPAM [Suspect]
     Active Substance: LORAZEPAM
     Dosage: 4 MILLIGRAM, QD
     Route: 048
     Dates: start: 20110202, end: 20110410
  72. LORAZEPAM [Suspect]
     Active Substance: LORAZEPAM
     Dosage: 16 MILLIGRAM, QD (4 MG, 4 TIMES PER DAY)
     Route: 048
     Dates: start: 20110224, end: 20110410
  73. LORAZEPAM [Suspect]
     Active Substance: LORAZEPAM
     Dosage: 1 MILLIGRAM
     Route: 048
     Dates: start: 20110224, end: 20110410
  74. LORAZEPAM [Suspect]
     Active Substance: LORAZEPAM
     Dosage: 1 MILLIGRAM
     Route: 048
     Dates: start: 20110523, end: 20110627
  75. LORAZEPAM [Suspect]
     Active Substance: LORAZEPAM
     Dosage: UNK, QD
     Route: 048
     Dates: start: 20110202, end: 20110410
  76. TRAMADOL HYDROCHLORIDE [Suspect]
     Active Substance: TRAMADOL HYDROCHLORIDE
     Indication: Neck pain
     Dosage: 5 MG, QD
     Route: 044
     Dates: start: 1995, end: 1996
  77. TRAMADOL HYDROCHLORIDE [Suspect]
     Active Substance: TRAMADOL HYDROCHLORIDE
     Indication: Analgesic therapy
     Dosage: QID (50-100MG)
     Route: 048
     Dates: start: 20080722
  78. TRAMADOL HYDROCHLORIDE [Suspect]
     Active Substance: TRAMADOL HYDROCHLORIDE
     Indication: Back pain
     Dosage: 4 CYCLICAL, QD, UNSURE, 2008/2009, DRUG START/DRUG WITHDRAWN, DURATION OF DRUG ADMINISTRATION: 740 D
     Route: 048
     Dates: start: 20081201, end: 20101210
  79. TRAMADOL HYDROCHLORIDE [Suspect]
     Active Substance: TRAMADOL HYDROCHLORIDE
     Indication: Pain
     Dosage: 4 CYCLICAL, QD (50-100 MG QD)
     Route: 048
     Dates: start: 20081201, end: 20101210
  80. TRAMADOL HYDROCHLORIDE [Suspect]
     Active Substance: TRAMADOL HYDROCHLORIDE
     Indication: Oculogyric crisis
     Dosage: 4 MG, ONCE PER DAY ((50-100 MG QD)
     Route: 048
     Dates: start: 20081201, end: 20101210
  81. TRAMADOL HYDROCHLORIDE [Suspect]
     Active Substance: TRAMADOL HYDROCHLORIDE
     Indication: Analgesic therapy
     Dosage: DISCONTINUED AFTER 4 OR 5 DAYS
     Route: 048
     Dates: start: 20081201, end: 20101210
  82. TRAMADOL HYDROCHLORIDE [Suspect]
     Active Substance: TRAMADOL HYDROCHLORIDE
     Dosage: UNK
     Route: 065
  83. TRAMADOL HYDROCHLORIDE [Suspect]
     Active Substance: TRAMADOL HYDROCHLORIDE
     Dosage: 8 MILLIGRAM
     Route: 065
     Dates: start: 20110725
  84. TRAMADOL HYDROCHLORIDE [Suspect]
     Active Substance: TRAMADOL HYDROCHLORIDE
     Dosage: 1 DOSAGE FORM
     Route: 065
     Dates: start: 20110725
  85. TRAMADOL HYDROCHLORIDE [Suspect]
     Active Substance: TRAMADOL HYDROCHLORIDE
     Dosage: UNK, QID
     Route: 048
     Dates: start: 2008, end: 2009
  86. CLONAZEPAM [Suspect]
     Active Substance: CLONAZEPAM
     Indication: Sedation
     Dosage: UNK
     Route: 048
     Dates: start: 20110224, end: 20110410
  87. CLONAZEPAM [Suspect]
     Active Substance: CLONAZEPAM
     Dosage: UNSURE QD, 24 EVERY HOUR
     Route: 048
     Dates: start: 20110615, end: 20110723
  88. CLONAZEPAM [Suspect]
     Active Substance: CLONAZEPAM
     Dosage: UNK
     Route: 048
     Dates: end: 20110410
  89. PHOSPHORUS [Suspect]
     Active Substance: PHOSPHORUS
     Indication: Product used for unknown indication
     Dosage: UNK
  90. PHOSPHORUS [Suspect]
     Active Substance: PHOSPHORUS
     Dosage: UNK
     Route: 065
  91. DOMPERIDONE [Suspect]
     Active Substance: DOMPERIDONE
     Indication: Product used for unknown indication
     Dosage: UNK
     Route: 065
  92. DOMPERIDONE [Suspect]
     Active Substance: DOMPERIDONE
     Indication: Product used for unknown indication
     Dosage: UNK
     Route: 048
  93. DOMPERIDONE [Suspect]
     Active Substance: DOMPERIDONE
     Dosage: UNK
     Route: 065
  94. DOMPERIDONE [Suspect]
     Active Substance: DOMPERIDONE
     Dosage: UNK
     Route: 048
     Dates: start: 20100923, end: 20101108
  95. DOMPERIDONE [Suspect]
     Active Substance: DOMPERIDONE
     Dosage: UNK
     Route: 048
  96. OMEPRAZOLE [Suspect]
     Active Substance: OMEPRAZOLE
     Indication: Dyspepsia
     Dosage: 20 MG, QD
     Route: 048
     Dates: start: 20110525
  97. OMEPRAZOLE [Suspect]
     Active Substance: OMEPRAZOLE
     Indication: Parosmia
     Dosage: 20 MG, QD
     Route: 048
  98. AMITRIPTYLINE HYDROCHLORIDE [Interacting]
     Active Substance: AMITRIPTYLINE HYDROCHLORIDE
     Indication: Muscle spasms
     Dosage: UNK
     Route: 065
  99. AMITRIPTYLINE HYDROCHLORIDE [Interacting]
     Active Substance: AMITRIPTYLINE HYDROCHLORIDE
     Indication: Neuralgia
  100. AMITRIPTYLINE HYDROCHLORIDE [Interacting]
     Active Substance: AMITRIPTYLINE HYDROCHLORIDE
     Indication: Serotonin syndrome
  101. AMITRIPTYLINE [Suspect]
     Active Substance: AMITRIPTYLINE
     Indication: Muscle spasms
     Dosage: 25MG AT NIGHT
     Route: 065
     Dates: start: 20110810
  102. AMITRIPTYLINE [Suspect]
     Active Substance: AMITRIPTYLINE
     Indication: Neuralgia
  103. PROCYCLIDINE [Interacting]
     Active Substance: PROCYCLIDINE
     Indication: Oculogyric crisis
     Dosage: 5 MG, QD
     Route: 048
     Dates: start: 1995, end: 1996
  104. PROCYCLIDINE [Interacting]
     Active Substance: PROCYCLIDINE
     Indication: Extrapyramidal disorder
     Dosage: UNK
     Route: 048
     Dates: start: 1995
  105. PROCYCLIDINE [Interacting]
     Active Substance: PROCYCLIDINE
     Dosage: 15 MG, QD (5 MG TID)
     Route: 048
     Dates: start: 20110503, end: 20110510
  106. PROCYCLIDINE [Interacting]
     Active Substance: PROCYCLIDINE
     Dosage: 20 MG
     Route: 048
     Dates: start: 20110324, end: 20110506
  107. PROCYCLIDINE [Interacting]
     Active Substance: PROCYCLIDINE
     Dosage: 20 MG, QD, IN 1ST TRIMESTER
     Route: 065
     Dates: start: 20110415
  108. PROCYCLIDINE [Interacting]
     Active Substance: PROCYCLIDINE
     Dosage: UNK
  109. PROCYCLIDINE [Interacting]
     Active Substance: PROCYCLIDINE
     Dosage: UNK
     Route: 048
     Dates: start: 20110503, end: 20110510
  110. PROCYCLIDINE [Interacting]
     Active Substance: PROCYCLIDINE
     Dosage: UNK
     Route: 048
     Dates: start: 20110324, end: 20110506
  111. QUETIAPINE [Suspect]
     Active Substance: QUETIAPINE
     Indication: Stress
     Dosage: UNK
     Route: 048
     Dates: start: 19990801, end: 20110706
  112. QUETIAPINE [Suspect]
     Active Substance: QUETIAPINE
     Indication: Psychotic disorder
     Dosage: UNK
     Route: 048
     Dates: start: 20110224, end: 20110506
  113. QUETIAPINE [Suspect]
     Active Substance: QUETIAPINE
     Indication: Psychotic disorder
  114. TRAMADOL [Suspect]
     Active Substance: TRAMADOL
     Indication: Analgesic therapy
     Route: 048
     Dates: start: 20081201, end: 20101210
  115. CODEINE PHOSPHATE [Interacting]
     Active Substance: CODEINE PHOSPHATE
     Indication: Serotonin syndrome
     Dosage: 120 MILLIGRAM, QD
     Route: 048
     Dates: start: 2008, end: 2008
  116. CODEINE PHOSPHATE [Interacting]
     Active Substance: CODEINE PHOSPHATE
     Indication: Analgesic therapy
     Dosage: UNK
     Route: 048
     Dates: start: 20110224, end: 20110410
  117. CODEINE PHOSPHATE [Interacting]
     Active Substance: CODEINE PHOSPHATE
     Dosage: 120 MILLIGRAM, QD
     Route: 048
     Dates: start: 2002, end: 2002
  118. CODEINE PHOSPHATE [Interacting]
     Active Substance: CODEINE PHOSPHATE
     Dosage: 120 MILLIGRAM, QD
     Route: 048
     Dates: start: 20110615, end: 20110723
  119. CODEINE PHOSPHATE [Interacting]
     Active Substance: CODEINE PHOSPHATE
     Dosage: UNK
     Route: 048
     Dates: start: 2008, end: 2008
  120. CODEINE PHOSPHATE [Interacting]
     Active Substance: CODEINE PHOSPHATE
     Dosage: UNK
     Route: 048
     Dates: start: 2002, end: 2002
  121. CODEINE PHOSPHATE [Interacting]
     Active Substance: CODEINE PHOSPHATE
     Dosage: UNK UNK, Q24H
     Route: 048
     Dates: start: 20110615, end: 20110723
  122. CODEINE PHOSPHATE [Interacting]
     Active Substance: CODEINE PHOSPHATE
     Dosage: 15-30 MG
     Route: 048
     Dates: start: 20110615, end: 20110723

REACTIONS (166)
  - Dyskinesia [Unknown]
  - Aphasia [Not Recovered/Not Resolved]
  - Depersonalisation/derealisation disorder [Not Recovered/Not Resolved]
  - Dissociation [Not Recovered/Not Resolved]
  - Toxicity to various agents [Unknown]
  - Psychotic disorder [Recovered/Resolved]
  - Muscle spasms [Not Recovered/Not Resolved]
  - H1N1 influenza [Unknown]
  - Muscle rigidity [Unknown]
  - Exposure during pregnancy [Not Recovered/Not Resolved]
  - Sleep disorder [Unknown]
  - Parosmia [Unknown]
  - Schizophrenia [Unknown]
  - Mania [Unknown]
  - Cogwheel rigidity [Unknown]
  - Headache [Unknown]
  - Nightmare [Unknown]
  - Paralysis [Unknown]
  - Limb injury [Unknown]
  - Paraesthesia [Unknown]
  - Drooling [Unknown]
  - Mood swings [Unknown]
  - Premature labour [Not Recovered/Not Resolved]
  - Pallor [Unknown]
  - Arthralgia [Unknown]
  - Neuroleptic malignant syndrome [Unknown]
  - Confusional state [Not Recovered/Not Resolved]
  - Emotional disorder [Unknown]
  - Speech disorder [Not Recovered/Not Resolved]
  - Seizure [Unknown]
  - Vision blurred [Unknown]
  - Pruritus [Unknown]
  - Sensory loss [Unknown]
  - Tachycardia [Unknown]
  - Somnolence [Not Recovered/Not Resolved]
  - Dizziness [Unknown]
  - Drug withdrawal syndrome [Unknown]
  - Urinary retention [Unknown]
  - Asthenia [Unknown]
  - Hallucinations, mixed [Unknown]
  - Depression [Unknown]
  - Diarrhoea [Unknown]
  - Contusion [Unknown]
  - Balance disorder [Unknown]
  - Fatigue [Unknown]
  - Illness [Unknown]
  - Agitation [Unknown]
  - Hypoaesthesia [Not Recovered/Not Resolved]
  - Heart rate increased [Unknown]
  - Restlessness [Not Recovered/Not Resolved]
  - Decreased appetite [Unknown]
  - Swollen tongue [Unknown]
  - Skin discolouration [Not Recovered/Not Resolved]
  - Hypoaesthesia oral [Not Recovered/Not Resolved]
  - Cyanosis [Fatal]
  - Dyspnoea [Unknown]
  - Mydriasis [Unknown]
  - Menstrual disorder [Unknown]
  - Drug interaction [Unknown]
  - Tremor [Not Recovered/Not Resolved]
  - Serotonin syndrome [Not Recovered/Not Resolved]
  - Dystonia [Unknown]
  - Feeling of despair [Unknown]
  - Feeling jittery [Unknown]
  - Tinnitus [Unknown]
  - Suicidal ideation [Not Recovered/Not Resolved]
  - Pyrexia [Unknown]
  - Restless legs syndrome [Not Recovered/Not Resolved]
  - Anxiety [Unknown]
  - Swelling face [Unknown]
  - Drug ineffective [Unknown]
  - Therapeutic product ineffective [Unknown]
  - Hyperhidrosis [Unknown]
  - Gait disturbance [Unknown]
  - Gastric pH decreased [Unknown]
  - Incontinence [Not Recovered/Not Resolved]
  - Drug withdrawal syndrome [Unknown]
  - Musculoskeletal stiffness [Not Recovered/Not Resolved]
  - Eye pain [Unknown]
  - Disturbance in attention [Unknown]
  - Vomiting [Unknown]
  - Blood sodium decreased [Unknown]
  - Muscle disorder [Unknown]
  - Disorientation [Not Recovered/Not Resolved]
  - Delirium [Unknown]
  - Feeling of body temperature change [Unknown]
  - Visual impairment [Unknown]
  - Derealisation [Not Recovered/Not Resolved]
  - Contusion [Unknown]
  - Eye pain [Unknown]
  - Drug ineffective [Unknown]
  - Paralysis [Unknown]
  - Restlessness [Unknown]
  - Muscle spasms [Not Recovered/Not Resolved]
  - Psychotic disorder [Recovered/Resolved]
  - Decreased appetite [Unknown]
  - Musculoskeletal stiffness [Not Recovered/Not Resolved]
  - Skin discolouration [Not Recovered/Not Resolved]
  - Schizophrenia [Not Recovered/Not Resolved]
  - Swelling face [Unknown]
  - Blood sodium decreased [Unknown]
  - Somnolence [Not Recovered/Not Resolved]
  - Disturbance in attention [Unknown]
  - Visual impairment [Unknown]
  - Drug withdrawal syndrome [Unknown]
  - Musculoskeletal stiffness [Unknown]
  - Muscle disorder [Unknown]
  - Off label use [Unknown]
  - Paraesthesia [Unknown]
  - H1N1 influenza [Unknown]
  - Urinary retention [Unknown]
  - Mood swings [Unknown]
  - Disorientation [Not Recovered/Not Resolved]
  - Contusion [Unknown]
  - Gastric pH decreased [Unknown]
  - Limb injury [Unknown]
  - Pyrexia [Unknown]
  - Fatigue [Unknown]
  - Drug withdrawal syndrome [Unknown]
  - Dizziness [Unknown]
  - Tinnitus [Unknown]
  - Asthenia [Unknown]
  - Dyspnoea [Unknown]
  - Serotonin syndrome [Not Recovered/Not Resolved]
  - Drooling [Unknown]
  - Dyskinesia [Unknown]
  - Delirium [Unknown]
  - Tremor [Not Recovered/Not Resolved]
  - Contusion [Not Recovered/Not Resolved]
  - Vision blurred [Unknown]
  - Asthenia [Unknown]
  - Cogwheel rigidity [Unknown]
  - Feeling of body temperature change [Unknown]
  - Premature labour [Not Recovered/Not Resolved]
  - Incontinence [Not Recovered/Not Resolved]
  - Arthralgia [Unknown]
  - Restless legs syndrome [Not Recovered/Not Resolved]
  - Muscle spasms [Unknown]
  - Hypoaesthesia [Not Recovered/Not Resolved]
  - Drug ineffective [Unknown]
  - Anxiety [Unknown]
  - Speech disorder [Unknown]
  - Hypoaesthesia oral [Unknown]
  - Swollen tongue [Unknown]
  - Seizure [Unknown]
  - Fatigue [Not Recovered/Not Resolved]
  - Hallucinations, mixed [Unknown]
  - Derealisation [Not Recovered/Not Resolved]
  - Confusional state [Not Recovered/Not Resolved]
  - Dystonia [Unknown]
  - Sensory loss [Unknown]
  - Cyanosis [Not Recovered/Not Resolved]
  - Dissociation [Not Recovered/Not Resolved]
  - Neuroleptic malignant syndrome [Unknown]
  - Emotional disorder [Unknown]
  - Gait disturbance [Unknown]
  - Muscle rigidity [Unknown]
  - Eye pain [Unknown]
  - Restlessness [Unknown]
  - Aphasia [Not Recovered/Not Resolved]
  - Depression [Unknown]
  - Therapeutic product ineffective [Unknown]
  - Hallucination [Unknown]
  - Maternal exposure during pregnancy [Unknown]
  - Exposure during pregnancy [Unknown]
  - Drug withdrawal syndrome [Unknown]

NARRATIVE: CASE EVENT DATE: 20030101
